FAERS Safety Report 24446738 (Version 1)
Quarter: 2024Q4

REPORT INFORMATION
  Report Type: Spontaneous
  Country: US (occurrence: US)
  Receive Date: 20241016
  Receipt Date: 20241016
  Transmission Date: 20250115
  Serious: Yes (Life-Threatening, Hospitalization, Other)
  Sender: DR REDDYS
  Company Number: None

PATIENT
  Age: 52 Year
  Sex: Female

DRUGS (5)
  1. SUMATRIPTAN [Suspect]
     Active Substance: SUMATRIPTAN
     Indication: Migraine
     Dosage: 100 MG ORAL SUMATRIPTAN FOR A MIGRAINE THAT MORNING
     Route: 048
  2. BUPIVACAINE [Concomitant]
     Active Substance: BUPIVACAINE
     Indication: Postoperative analgesia
     Dosage: A TOTAL OF 3 ML OF 2% LIDOCAINE AND 6 ML OF 0.5% BUPIVACAINE WERE UTILIZED FOR PRE AND POST-ABLATION
  3. LIDOCAINE [Concomitant]
     Active Substance: LIDOCAINE
     Indication: Perioperative analgesia
     Dosage: A TOTAL OF 3 ML OF 2% LIDOCAINE AND 6 ML OF 0.5% BUPIVACAINE WERE UTILIZED FOR PRE AND POST-ABLATION
  4. CLONAZEPAM [Concomitant]
     Active Substance: CLONAZEPAM
     Indication: Panic attack
  5. CLONAZEPAM [Concomitant]
     Active Substance: CLONAZEPAM
     Indication: Anxiety

REACTIONS (1)
  - Acute myocardial infarction [Recovered/Resolved]
